FAERS Safety Report 22606438 (Version 1)
Quarter: 2023Q2

REPORT INFORMATION
  Report Type: Spontaneous
  Country: US (occurrence: US)
  Receive Date: 20230615
  Receipt Date: 20230615
  Transmission Date: 20230722
  Serious: Yes (Other)
  Sender: FDA-Public Use
  Company Number: US-TAKEDA-2023TUS034204

PATIENT
  Sex: Male
  Weight: 22.7 kg

DRUGS (1)
  1. ELAPRASE [Suspect]
     Active Substance: IDURSULFASE
     Indication: Mucopolysaccharidosis II
     Dosage: UNK UNK, 1/WEEK
     Route: 042
     Dates: start: 20221117

REACTIONS (8)
  - Apnoea [Unknown]
  - Respiratory distress [Unknown]
  - Hypersomnia [Unknown]
  - Oxygen saturation decreased [Unknown]
  - Pain [Unknown]
  - Headache [Unknown]
  - Pyrexia [Recovered/Resolved]
  - Tachycardia [Recovered/Resolved]
